FAERS Safety Report 23623115 (Version 1)
Quarter: 2024Q1

REPORT INFORMATION
  Report Type: Spontaneous
  Country: US (occurrence: None)
  Receive Date: 20240312
  Receipt Date: 20240312
  Transmission Date: 20240410
  Serious: Yes (unspecified)
  Sender: FDA-Public Use
  Company Number: None

PATIENT
  Age: 24 Year
  Sex: Female
  Weight: 81 kg

DRUGS (7)
  1. ROBINUL [Suspect]
     Active Substance: GLYCOPYRROLATE
     Indication: Hyperhidrosis
     Dates: start: 20240306, end: 20240310
  2. ROBINUL [Suspect]
     Active Substance: GLYCOPYRROLATE
     Indication: Skin odour abnormal
  3. VRAYLAR [Concomitant]
     Active Substance: CARIPRAZINE
  4. VIIBRYD [Concomitant]
     Active Substance: VILAZODONE HYDROCHLORIDE
  5. Womens probiotic natures garden [Concomitant]
  6. UNSPECIFIED INGREDIENT [Concomitant]
     Active Substance: UNSPECIFIED INGREDIENT
  7. VITAMIN C [Concomitant]
     Active Substance: ASCORBIC ACID

REACTIONS (3)
  - Dry mouth [None]
  - Dyskinesia [None]
  - Dizziness [None]

NARRATIVE: CASE EVENT DATE: 20240306
